FAERS Safety Report 8856931 (Version 1)
Quarter: 2012Q4

REPORT INFORMATION
  Report Type: Spontaneous
  Country: US (occurrence: None)
  Receive Date: 20121023
  Receipt Date: 20121023
  Transmission Date: 20130627
  Serious: Yes (Other)
  Sender: FDA-Public Use
  Company Number: None

PATIENT
  Age: 35 Year
  Sex: Male
  Weight: 106.6 kg

DRUGS (1)
  1. PRAMIPEXOLE [Suspect]
     Indication: RESTLESS LEG SYNDROME
     Route: 048
     Dates: start: 20120911, end: 20120921

REACTIONS (6)
  - Dyskinesia [None]
  - Tic [None]
  - Dyskinesia [None]
  - Snoring [None]
  - Condition aggravated [None]
  - Sleep apnoea syndrome [None]
